FAERS Safety Report 22623975 (Version 1)
Quarter: 2023Q2

REPORT INFORMATION
  Report Type: Spontaneous
  Country: CO (occurrence: CO)
  Receive Date: 20230621
  Receipt Date: 20230621
  Transmission Date: 20230722
  Serious: Yes (Other)
  Sender: FDA-Public Use
  Company Number: CO-SA-SAC20230609000251

PATIENT
  Age: 56 Year
  Sex: Female

DRUGS (3)
  1. PRALUENT [Suspect]
     Active Substance: ALIROCUMAB
     Indication: Type IIa hyperlipidaemia
     Dosage: 75 MG, Q15D, LUTION FOR INJECTION
     Route: 058
     Dates: start: 20220601, end: 202305
  2. STAFEN [FLURBIPROFEN] [Concomitant]
     Indication: Blood triglycerides abnormal
     Dosage: UNK
  3. STAFEN [FLURBIPROFEN] [Concomitant]
     Dosage: UNK

REACTIONS (3)
  - Pancreatitis [Unknown]
  - Dyslipidaemia [Unknown]
  - Blood triglycerides increased [Unknown]

NARRATIVE: CASE EVENT DATE: 20230501
